FAERS Safety Report 18592791 (Version 1)
Quarter: 2020Q4

REPORT INFORMATION
  Report Type: Spontaneous
  Country: TH (occurrence: TH)
  Receive Date: 20201209
  Receipt Date: 20201209
  Transmission Date: 20210114
  Serious: Yes (Life-Threatening, Other)
  Sender: FDA-Public Use
  Company Number: TH-LUPIN PHARMACEUTICALS INC.-2020-03231

PATIENT

DRUGS (1)
  1. LEVETIRACETAM. [Suspect]
     Active Substance: LEVETIRACETAM
     Indication: STATUS EPILEPTICUS
     Dosage: UNK (LOADING DOSE BETWEEN 1000 MG/DAY AND 1500 MG/DAY AND MAINTENANCE DOSE BETWEEN 500 MG/DAY AND 20
     Route: 042

REACTIONS (1)
  - Seizure [Unknown]
